FAERS Safety Report 14740205 (Version 2)
Quarter: 2018Q2

REPORT INFORMATION
  Report Type: Spontaneous
  Country: US (occurrence: US)
  Receive Date: 20180410
  Receipt Date: 20180509
  Transmission Date: 20180711
  Serious: No
  Sender: FDA-Public Use
  Company Number: US-PFIZER INC-2018142084

PATIENT
  Age: 46 Year
  Sex: Female
  Weight: 67 kg

DRUGS (1)
  1. IBRANCE [Suspect]
     Active Substance: PALBOCICLIB
     Indication: BREAST CANCER METASTATIC
     Dosage: 125 MG, CYCLIC (D1-21 Q28 DAYS)
     Route: 048
     Dates: start: 201706

REACTIONS (7)
  - Discomfort [Unknown]
  - Peripheral swelling [Unknown]
  - Alopecia [Unknown]
  - Arthralgia [Unknown]
  - Swelling face [Unknown]
  - Bone pain [Unknown]
  - Muscle spasms [Unknown]
